FAERS Safety Report 7063261-9 (Version None)
Quarter: 2010Q4

REPORT INFORMATION
  Report Type: 
  Country: None (occurrence: None)
  Receive Date: 20101026
  Receipt Date: 20100702
  Transmission Date: 20110411
  Serious: No
  Sender: FDA-Public Use
  Company Number: US-PFIZER INC-2010084006

PATIENT
  Sex: Male

DRUGS (7)
  1. LIPITOR [Suspect]
     Indication: BLOOD CHOLESTEROL INCREASED
     Dosage: 20 MG, 1X/DAY
     Dates: start: 20090101
  2. DIOVAN HCT [Concomitant]
     Dosage: 325/5 UNK, UNK
  3. GLUCOPHAGE XR [Concomitant]
     Dosage: 500 MG, UNK
  4. QUINIDINE HCL [Concomitant]
     Dosage: 0.01 UNK, UNK
  5. RESTORIL [Concomitant]
     Dosage: UNK
  6. DILTIAZEM [Concomitant]
     Dosage: 180 MG, UNK
  7. LEVITRA [Concomitant]
     Dosage: 20 MG, UNK

REACTIONS (1)
  - BREAST DISCOMFORT [None]
